FAERS Safety Report 4975090-8 (Version None)
Quarter: 2006Q2

REPORT INFORMATION
  Report Type: 
  Country: None (occurrence: None)
  Receive Date: 20060414
  Receipt Date: 20060414
  Transmission Date: 20061013
  Serious: Yes (Hospitalization, Other)
  Sender: FDA-Public Use
  Company Number: None

PATIENT
  Age: 44 Year
  Sex: Male
  Weight: 61 kg

DRUGS (24)
  1. AVELOX [Suspect]
     Indication: PNEUMONIA
     Dosage: 400 MG EVERY 24 HOURS IV BOLUS
     Route: 040
     Dates: start: 20060224, end: 20060301
  2. FOLIC ACID [Concomitant]
  3. CALCIUM CARBONATE [Concomitant]
  4. PAROXETINE HCL [Concomitant]
  5. LACTULOSE [Concomitant]
  6. NEPHRO-VITE [Concomitant]
  7. CARVEDILOL [Concomitant]
  8. LISINOPRIL [Concomitant]
  9. VICODIN [Concomitant]
  10. LOVASTATIN [Concomitant]
  11. ALBUTEROL SULFATE AUTOHALER [Concomitant]
  12. LORAZEPAM [Concomitant]
  13. NITROGLYCERIN SR [Concomitant]
  14. OMEPRAZOLE [Concomitant]
  15. PROCARDIA XL [Concomitant]
  16. AVELOX [Concomitant]
  17. EPOETIN [Concomitant]
  18. COMBIVENT [Concomitant]
  19. CEFOTAXIME [Concomitant]
  20. TYLENOL (CAPLET) [Concomitant]
  21. NITROGLYCERIN [Concomitant]
  22. MORPHINE [Concomitant]
  23. FELODIPINE [Concomitant]
  24. FERROUS SULFATE TAB [Concomitant]

REACTIONS (3)
  - ELECTROCARDIOGRAM QT CORRECTED INTERVAL PROLONGED [None]
  - OXYGEN SATURATION DECREASED [None]
  - VENTRICULAR TACHYCARDIA [None]
